FAERS Safety Report 14660333 (Version 7)
Quarter: 2020Q1

REPORT INFORMATION
  Report Type: Spontaneous
  Country: US (occurrence: US)
  Receive Date: 20180320
  Receipt Date: 20200317
  Transmission Date: 20200409
  Serious: Yes (Hospitalization, Other)
  Sender: FDA-Public Use
  Company Number: US-VIFOR (INTERNATIONAL) INC.-VIT-2018-01017

PATIENT
  Age: 62 Year
  Sex: Female
  Weight: 74 kg

DRUGS (20)
  1. CHLORTHALIDONE. [Concomitant]
     Active Substance: CHLORTHALIDONE
  2. FERROUS SULFATE. [Concomitant]
     Active Substance: FERROUS SULFATE
  3. VITAMIN D3 [Concomitant]
     Active Substance: CHOLECALCIFEROL
  4. VELTASSA [Suspect]
     Active Substance: PATIROMER
     Indication: HYPERKALAEMIA
     Route: 048
     Dates: start: 20161206
  5. SPIRONOLACTONE. [Concomitant]
     Active Substance: SPIRONOLACTONE
  6. AMILORIDE [Concomitant]
     Active Substance: AMILORIDE
     Indication: BLOOD PRESSURE MEASUREMENT
  7. ASPIRIN. [Concomitant]
     Active Substance: ASPIRIN
  8. ATORVASTATIN CALCIUM. [Concomitant]
     Active Substance: ATORVASTATIN CALCIUM
  9. CELLCEPT [Concomitant]
     Active Substance: MYCOPHENOLATE MOFETIL\MYCOPHENOLATE MOFETIL HYDROCHLORIDE
  10. ONE TOUCH [Concomitant]
     Active Substance: DEXTROSE
  11. RAPAMUNE [Concomitant]
     Active Substance: SIROLIMUS
  12. VITAMIN B12 [Concomitant]
     Active Substance: CYANOCOBALAMIN
  13. VITAMIN C [Concomitant]
     Active Substance: ASCORBIC ACID
  14. TELMISARTAN. [Concomitant]
     Active Substance: TELMISARTAN
  15. CARTIA XT [Concomitant]
     Active Substance: DILTIAZEM HYDROCHLORIDE
  16. MULTIVITAMIN [Concomitant]
     Active Substance: VITAMINS
  17. SODIUM BICARBONATE. [Concomitant]
     Active Substance: SODIUM BICARBONATE
  18. CARVEDILOL. [Concomitant]
     Active Substance: CARVEDILOL
  19. HUMALOG MIX [Concomitant]
     Active Substance: INSULIN LISPRO
  20. FUROSEMIDE. [Concomitant]
     Active Substance: FUROSEMIDE

REACTIONS (11)
  - Blood potassium increased [Recovered/Resolved]
  - Hospitalisation [Unknown]
  - Pancreatitis [Unknown]
  - Nausea [Unknown]
  - Product dose omission [Unknown]
  - Urinary retention [Unknown]
  - Blood pressure systolic increased [Unknown]
  - Malaise [Recovered/Resolved]
  - Arteriovenous fistula operation [Unknown]
  - Renal impairment [Unknown]
  - Surgery [Unknown]

NARRATIVE: CASE EVENT DATE: 20171121
